FAERS Safety Report 5583581-4 (Version None)
Quarter: 2007Q4

REPORT INFORMATION
  Report Type: 
  Country: None (occurrence: None)
  Receive Date: 20071231
  Receipt Date: 20071219
  Transmission Date: 20080405
  Serious: Yes (Other)
  Sender: FDA-Public Use
  Company Number: 2007338225

PATIENT
  Age: 2 Year
  Sex: Female
  Weight: 10.8863 kg

DRUGS (1)
  1. PEDIACARE CHILDREN'S DECONGESTANT (PE) (PHENYLEPHRINE) [Suspect]
     Indication: NASAL CONGESTION
     Dosage: 1 TSP ONCE, ORAL
     Route: 048
     Dates: start: 20071218, end: 20071218

REACTIONS (3)
  - CRYING [None]
  - HALLUCINATION [None]
  - INSOMNIA [None]
